FAERS Safety Report 16828831 (Version 1)
Quarter: 2019Q3

REPORT INFORMATION
  Report Type: Spontaneous
  Country: US (occurrence: US)
  Receive Date: 20190919
  Receipt Date: 20190919
  Transmission Date: 20191005
  Serious: Yes (Other)
  Sender: FDA-Public Use
  Company Number: US-BAYER-2019-168341

PATIENT
  Age: 70 Year
  Sex: Male

DRUGS (1)
  1. ADEMPAS [Suspect]
     Active Substance: RIOCIGUAT
     Indication: PULMONARY HYPERTENSION
     Dosage: 1.5 MG, TID
     Route: 048
     Dates: start: 20160929

REACTIONS (6)
  - Dyspnoea [None]
  - Cough [None]
  - Cardiac failure acute [None]
  - Oedema peripheral [None]
  - Pulmonary arterial hypertension [None]
  - Oxygen saturation decreased [None]

NARRATIVE: CASE EVENT DATE: 20190901
